FAERS Safety Report 15833935 (Version 2)
Quarter: 2019Q1

REPORT INFORMATION
  Report Type: Spontaneous
  Country: DE (occurrence: DE)
  Receive Date: 20190116
  Receipt Date: 20190116
  Transmission Date: 20190417
  Serious: Yes (Other)
  Sender: FDA-Public Use
  Company Number: PHHY2019DE004540

PATIENT
  Age: 38 Year
  Sex: Male

DRUGS (4)
  1. MONOPROST [Suspect]
     Active Substance: LATANOPROST
     Indication: GLAUCOMA
     Dosage: 1 ?G/L, QD
     Route: 031
     Dates: start: 201701
  2. SIMBRINZA [Suspect]
     Active Substance: BRIMONIDINE TARTRATE\BRINZOLAMIDE
     Indication: GLAUCOMA
     Dosage: 1 GTT, BID
     Route: 031
     Dates: start: 20160624, end: 20161201
  3. DORZOLAMIDE [Suspect]
     Active Substance: DORZOLAMIDE
     Indication: GLAUCOMA
     Dosage: 1 GTT, BID (2 DROPS IN THE EVENING)
     Route: 031
     Dates: start: 201701, end: 2017
  4. LATANELB [Suspect]
     Active Substance: LATANOPROST
     Indication: GLAUCOMA
     Dosage: 1 GTT, QD (ONE DROP PER EYE EACH EVENING)
     Route: 031
     Dates: start: 201712

REACTIONS (14)
  - Somnolence [Unknown]
  - Bradyphrenia [Unknown]
  - Condition aggravated [Unknown]
  - Fatigue [Unknown]
  - Impaired work ability [Not Recovered/Not Resolved]
  - Listless [Unknown]
  - Memory impairment [Unknown]
  - Muscular weakness [Not Recovered/Not Resolved]
  - Dizziness [Unknown]
  - Abnormal behaviour [Not Recovered/Not Resolved]
  - Lethargy [Unknown]
  - Loss of control of legs [Unknown]
  - Headache [Not Recovered/Not Resolved]
  - Gait disturbance [Unknown]

NARRATIVE: CASE EVENT DATE: 2016
